FAERS Safety Report 23040131 (Version 2)
Quarter: 2023Q4

REPORT INFORMATION
  Report Type: Spontaneous
  Country: BR (occurrence: BR)
  Receive Date: 20231006
  Receipt Date: 20231024
  Transmission Date: 20240110
  Serious: Yes (Other)
  Sender: FDA-Public Use
  Company Number: BR-ELI_LILLY_AND_COMPANY-BR202309015632

PATIENT
  Sex: Female

DRUGS (2)
  1. BASAGLAR [Suspect]
     Active Substance: INSULIN GLARGINE
     Indication: Diabetes mellitus
     Dosage: UNK UNK, UNKNOWN
     Route: 065
     Dates: start: 202101
  2. SYNTHROID [Concomitant]
     Active Substance: LEVOTHYROXINE SODIUM
     Indication: Thyroid disorder

REACTIONS (14)
  - Syncope [Unknown]
  - Spinal pain [Unknown]
  - Sleep disorder due to general medical condition, insomnia type [Unknown]
  - Back pain [Unknown]
  - Spinal disorder [Unknown]
  - Blood glucose increased [Unknown]
  - Weight decreased [Unknown]
  - Protein total decreased [Unknown]
  - Blood iron decreased [Unknown]
  - Diarrhoea [Unknown]
  - Dysstasia [Unknown]
  - Injection site bruising [Unknown]
  - Expired product administered [Unknown]
  - Incorrect product administration duration [Unknown]
